FAERS Safety Report 5517870-6 (Version None)
Quarter: 2007Q4

REPORT INFORMATION
  Report Type: 
  Country: None (occurrence: None)
  Receive Date: 20071113
  Receipt Date: 20071025
  Transmission Date: 20080405
  Serious: Yes (Other)
  Sender: FDA-Public Use
  Company Number: IMP_03107_2007

PATIENT
  Sex: Male

DRUGS (1)
  1. BUDEPRION 150 MG (NOT SPECIFIED) [Suspect]
     Indication: DRUG USE FOR UNKNOWN INDICATION
     Dosage: (150 MG BID ORAL)
     Route: 048
     Dates: start: 20070101, end: 20070101

REACTIONS (6)
  - DYSARTHRIA [None]
  - DYSPHEMIA [None]
  - IMPAIRED WORK ABILITY [None]
  - PAROSMIA [None]
  - PHARMACEUTICAL PRODUCT COMPLAINT [None]
  - SPEECH DISORDER [None]
